FAERS Safety Report 13781005 (Version 1)
Quarter: 2017Q3

REPORT INFORMATION
  Report Type: Spontaneous
  Country: US (occurrence: US)
  Receive Date: 20170721
  Receipt Date: 20170721
  Transmission Date: 20171127
  Serious: No
  Sender: FDA-Public Use
  Company Number: None

PATIENT
  Age: 46 Year
  Sex: Male
  Weight: 89.95 kg

DRUGS (1)
  1. LITHIUM. [Suspect]
     Active Substance: LITHIUM
     Route: 048
     Dates: start: 20141117, end: 20170501

REACTIONS (3)
  - Renal impairment [None]
  - Renal tubular atrophy [None]
  - Toxicity to various agents [None]

NARRATIVE: CASE EVENT DATE: 20170710
